FAERS Safety Report 20866703 (Version 1)
Quarter: 2022Q2

REPORT INFORMATION
  Report Type: Other
  Country: CN (occurrence: None)
  Receive Date: 20220524
  Receipt Date: 20220524
  Transmission Date: 20220721
  Serious: Yes (Other)
  Sender: FDA-Public Use
  Company Number: CN-ROCHE-3101489

PATIENT
  Age: 64 Year
  Sex: Female

DRUGS (12)
  1. RITUXIMAB [Suspect]
     Active Substance: RITUXIMAB
     Indication: Primary cardiac lymphoma
     Route: 065
  2. RITUXIMAB [Suspect]
     Active Substance: RITUXIMAB
     Indication: Renal amyloidosis
  3. CYCLOPHOSPHAMIDE [Suspect]
     Active Substance: CYCLOPHOSPHAMIDE
     Indication: Primary cardiac lymphoma
     Dosage: DAY 1
     Route: 065
  4. CYCLOPHOSPHAMIDE [Suspect]
     Active Substance: CYCLOPHOSPHAMIDE
     Indication: Renal amyloidosis
     Dosage: DAY 1-2
     Route: 065
  5. BORTEZOMIB [Suspect]
     Active Substance: BORTEZOMIB
     Indication: Primary cardiac lymphoma
     Dosage: DAY 1
     Route: 065
  6. BORTEZOMIB [Suspect]
     Active Substance: BORTEZOMIB
     Indication: Renal amyloidosis
  7. DEXAMETHASONE [Suspect]
     Active Substance: DEXAMETHASONE
     Indication: Primary cardiac lymphoma
     Dosage: DAY 1
     Route: 065
  8. DEXAMETHASONE [Suspect]
     Active Substance: DEXAMETHASONE
     Indication: Renal amyloidosis
     Dosage: DAY 1-5
     Route: 065
  9. EPIRUBICIN [Suspect]
     Active Substance: EPIRUBICIN
     Indication: Primary cardiac lymphoma
     Dosage: DAY1-2
     Route: 065
  10. EPIRUBICIN [Suspect]
     Active Substance: EPIRUBICIN
     Indication: Renal amyloidosis
  11. VINDESINE [Suspect]
     Active Substance: VINDESINE
     Indication: Primary cardiac lymphoma
     Dosage: DAY1
     Route: 065
  12. VINDESINE [Suspect]
     Active Substance: VINDESINE
     Indication: Renal amyloidosis

REACTIONS (7)
  - Atrial fibrillation [Unknown]
  - Pneumonia [Unknown]
  - Renal failure [Unknown]
  - Hypocalcaemia [Unknown]
  - Diarrhoea [Unknown]
  - Peripheral swelling [Unknown]
  - Oedema [Unknown]
